FAERS Safety Report 20016348 (Version 1)
Quarter: 2021Q4

REPORT INFORMATION
  Report Type: Spontaneous
  Country: US (occurrence: None)
  Receive Date: 20211103
  Receipt Date: 20211103
  Transmission Date: 20220304
  Serious: Yes (Death)
  Sender: FDA-Public Use
  Company Number: None

PATIENT
  Age: 54 Year
  Sex: Male
  Weight: 139.9 kg

DRUGS (29)
  1. BARICITINIB [Suspect]
     Active Substance: BARICITINIB
     Indication: COVID-19
     Dosage: FREQUENCY : DAILY;?
     Route: 048
     Dates: start: 20211023, end: 20211025
  2. DEXAMETHASONE [Concomitant]
     Active Substance: DEXAMETHASONE
  3. APIXABAN [Concomitant]
     Active Substance: APIXABAN
  4. ACETAMINOPHEN [Concomitant]
     Active Substance: ACETAMINOPHEN
  5. DUONEB [Concomitant]
     Active Substance: ALBUTEROL SULFATE\IPRATROPIUM BROMIDE
  6. ASCORBIC ACID [Concomitant]
     Active Substance: ASCORBIC ACID
  7. ATORVASTATIN [Concomitant]
     Active Substance: ATORVASTATIN
  8. BENZONATATE [Concomitant]
     Active Substance: BENZONATATE
  9. Budesonide neb [Concomitant]
  10. CHOLECALCIFEROL [Concomitant]
     Active Substance: CHOLECALCIFEROL
  11. FAMOTIDINE [Concomitant]
     Active Substance: FAMOTIDINE
  12. FLUTICASONE [Concomitant]
     Active Substance: FLUTICASONE
  13. FUROSEMIDE [Concomitant]
     Active Substance: FUROSEMIDE
  14. GUAIFENESIN [Concomitant]
     Active Substance: GUAIFENESIN
  15. HYDROXYZINE [Concomitant]
     Active Substance: HYDROXYZINE HYDROCHLORIDE
  16. Humalog sliding [Concomitant]
  17. CHLORASEPTIC SORE THROAT [Concomitant]
     Active Substance: PHENOL
  18. Mupirocin oinment [Concomitant]
  19. ONDANSETRON [Concomitant]
     Active Substance: ONDANSETRON
  20. Oxymetazoline nasal [Concomitant]
  21. MIRALAX [Concomitant]
     Active Substance: POLYETHYLENE GLYCOL 3350
  22. PROPRANOLOL [Concomitant]
     Active Substance: PROPRANOLOL HYDROCHLORIDE
  23. QUETIAPINE [Concomitant]
     Active Substance: QUETIAPINE
  24. REMDESIVIR [Concomitant]
     Active Substance: REMDESIVIR
  25. Senna/Docusate [Concomitant]
  26. SODIUM CHLORIDE [Concomitant]
  27. SUMATRIPTAN [Concomitant]
     Active Substance: SUMATRIPTAN
  28. VERAPAMIL [Concomitant]
     Active Substance: VERAPAMIL HYDROCHLORIDE
  29. ZINC SULFATE [Concomitant]
     Active Substance: ZINC SULFATE

REACTIONS (6)
  - Bacterial infection [None]
  - Leukocytosis [None]
  - Bandaemia [None]
  - Pulmonary embolism [None]
  - Fibrin D dimer increased [None]
  - Ventricular fibrillation [None]

NARRATIVE: CASE EVENT DATE: 20211027
